FAERS Safety Report 15899444 (Version 1)
Quarter: 2019Q1

REPORT INFORMATION
  Report Type: Spontaneous
  Country: DE (occurrence: DE)
  Receive Date: 20190201
  Receipt Date: 20190201
  Transmission Date: 20190417
  Serious: Yes (Other)
  Sender: FDA-Public Use
  Company Number: DE-TEVA-2019-DE-1002659

PATIENT
  Age: 80 Year
  Sex: Female

DRUGS (1)
  1. METOPROLOL-RATIOPHARM SUCCINAT (METOPROLOL SUCCINATE) [Suspect]
     Active Substance: METOPROLOL SUCCINATE
     Route: 048

REACTIONS (3)
  - Blood pressure increased [Unknown]
  - Food interaction [Unknown]
  - Lip swelling [Unknown]
